FAERS Safety Report 24732466 (Version 2)
Quarter: 2025Q1

REPORT INFORMATION
  Report Type: Spontaneous
  Country: US (occurrence: US)
  Receive Date: 20241213
  Receipt Date: 20250114
  Transmission Date: 20250409
  Serious: No
  Sender: EISAI
  Company Number: US-Eisai-EC-2024-179121

PATIENT
  Sex: Female

DRUGS (6)
  1. LEQEMBI [Suspect]
     Active Substance: LECANEMAB-IRMB
     Indication: Dementia Alzheimer^s type
     Route: 042
     Dates: start: 20241101
  2. INDOCIN [Concomitant]
     Active Substance: INDOMETHACIN
  3. DONEPEZIL [Concomitant]
     Active Substance: DONEPEZIL
  4. CLARITIN [Concomitant]
     Active Substance: LORATADINE
  5. MEMANTINE [Concomitant]
     Active Substance: MEMANTINE
  6. CRESTOR [Concomitant]
     Active Substance: ROSUVASTATIN CALCIUM

REACTIONS (2)
  - Dyspnoea [Recovered/Resolved]
  - Infusion related reaction [Recovered/Resolved]

NARRATIVE: CASE EVENT DATE: 20241101
